FAERS Safety Report 19667382 (Version 8)
Quarter: 2023Q4

REPORT INFORMATION
  Report Type: Report from Study
  Country: RU (occurrence: RU)
  Receive Date: 20210806
  Receipt Date: 20231102
  Transmission Date: 20240109
  Serious: Yes (Hospitalization, Other)
  Sender: FDA-Public Use
  Company Number: RU-ASTRAZENECA-2021-19402

PATIENT
  Age: 59 Year
  Sex: Female

DRUGS (5)
  1. FAM-TRASTUZUMAB DERUXTECAN-NXKI [Suspect]
     Active Substance: FAM-TRASTUZUMAB DERUXTECAN-NXKI
     Indication: HER2 positive gastric cancer
     Dosage: 6.4 MG/KG, ONCE EVERY 3 WK
     Route: 042
     Dates: start: 20210707, end: 20210707
  2. DURVALUMAB [Suspect]
     Active Substance: DURVALUMAB
     Indication: HER2 positive gastric cancer
     Dosage: 1120 MG, ONCE EVERY 3 WK
     Route: 042
     Dates: start: 20210707, end: 20210707
  3. CAPECITABINE [Suspect]
     Active Substance: CAPECITABINE
     Indication: HER2 positive gastric cancer
     Dosage: 1000 MG/M2, ONCE EVERY 3 WK
     Route: 048
     Dates: start: 20210707, end: 20210721
  4. METOPROLOL SUCCINATE [Concomitant]
     Active Substance: METOPROLOL SUCCINATE
     Indication: Hypertension
     Dosage: 25 MG, QD
     Route: 048
     Dates: start: 20200501, end: 20210717
  5. FILGRASTIMUM [Concomitant]
     Indication: Febrile neutropenia
     Dosage: 300.0 MKG DAILY
     Route: 023
     Dates: start: 20210721, end: 20210725

REACTIONS (1)
  - Colitis [Recovered/Resolved]

NARRATIVE: CASE EVENT DATE: 20210721
